FAERS Safety Report 12671608 (Version 1)
Quarter: 2016Q3

REPORT INFORMATION
  Report Type: Spontaneous
  Country: US (occurrence: US)
  Receive Date: 20160822
  Receipt Date: 20160822
  Transmission Date: 20161109
  Serious: No
  Sender: FDA-Public Use
  Company Number: US-BEH-2016072534

PATIENT
  Sex: Male
  Weight: 73.16 kg

DRUGS (17)
  1. HIZENTRA [Suspect]
     Active Substance: HUMAN IMMUNOGLOBULIN G
     Indication: SELECTIVE IGG SUBCLASS DEFICIENCY
     Dosage: 100 MG/KG, QW
     Route: 065
     Dates: start: 20140814
  2. CALCIUM [Concomitant]
     Active Substance: CALCIUM
  3. PRILOSEC [Concomitant]
     Active Substance: OMEPRAZOLE MAGNESIUM
  4. OXYCODONE [Concomitant]
     Active Substance: OXYCODONE
  5. DIPHENHYDRAMINE. [Concomitant]
     Active Substance: DIPHENHYDRAMINE
  6. XOPENEX [Concomitant]
     Active Substance: LEVALBUTEROL HYDROCHLORIDE
  7. MORPHINE [Concomitant]
     Active Substance: MORPHINE
  8. CYCLOBENZAPRINE [Concomitant]
     Active Substance: CYCLOBENZAPRINE
  9. EPIPEN [Concomitant]
     Active Substance: EPINEPHRINE
  10. LIDOCAINE. [Concomitant]
     Active Substance: LIDOCAINE
  11. NASONEX [Concomitant]
     Active Substance: MOMETASONE FUROATE
  12. IPRATROPIUM [Concomitant]
     Active Substance: IPRATROPIUM
  13. VITAMIN D3 [Concomitant]
     Active Substance: CHOLECALCIFEROL
  14. IBUPROFEN. [Concomitant]
     Active Substance: IBUPROFEN
  15. SYMBICORT [Concomitant]
     Active Substance: BUDESONIDE\FORMOTEROL FUMARATE DIHYDRATE
  16. ASPIRIN. [Concomitant]
     Active Substance: ASPIRIN
  17. ACETAMINOPHEN. [Concomitant]
     Active Substance: ACETAMINOPHEN

REACTIONS (1)
  - Migraine [Unknown]
